FAERS Safety Report 17090008 (Version 8)
Quarter: 2021Q3

REPORT INFORMATION
  Report Type: Report from Study
  Country: CO (occurrence: CO)
  Receive Date: 20191129
  Receipt Date: 20210809
  Transmission Date: 20211014
  Serious: Yes (Hospitalization, Other)
  Sender: FDA-Public Use
  Company Number: CO-ASTELLAS-2019US047352

PATIENT
  Age: 32 Year
  Sex: Male

DRUGS (10)
  1. CELLCEPT [Suspect]
     Active Substance: MYCOPHENOLATE MOFETIL\MYCOPHENOLATE MOFETIL HYDROCHLORIDE
     Indication: RENAL TRANSPLANT
     Route: 048
     Dates: start: 20190820
  2. NIFEDIPINE. [Concomitant]
     Active Substance: NIFEDIPINE
     Indication: BLOOD PRESSURE MEASUREMENT
     Dosage: UNK UNK, UNKNOWN FREQ.
     Route: 048
     Dates: start: 20190820
  3. DILTIAZEM. [Concomitant]
     Active Substance: DILTIAZEM
     Indication: BLOOD PRESSURE MEASUREMENT
     Route: 048
     Dates: start: 20190820
  4. TACROLIMUS. [Suspect]
     Active Substance: TACROLIMUS
     Dosage: 25 MG, ONCE DAILY (5 CAPSULES OF 5 MG)
     Route: 048
     Dates: end: 201911
  5. TACROLIMUS. [Suspect]
     Active Substance: TACROLIMUS
     Dosage: 15 MG, ONCE DAILY (3 CAPSULES OF 5 MG)
     Route: 048
     Dates: start: 201911
  6. PREDNISOLONE. [Suspect]
     Active Substance: PREDNISOLONE
     Indication: PRODUCT USED FOR UNKNOWN INDICATION
     Dosage: UNK UNK, UNKNOWN FREQ.
     Route: 065
  7. TACROLIMUS. [Suspect]
     Active Substance: TACROLIMUS
     Dosage: 16 MG, ONCE DAILY (3 CAPSULES OF 5MG AND 1 CAPSULE OF 1MG)
     Route: 048
  8. VALIXA [Concomitant]
     Active Substance: VALGANCICLOVIR
     Indication: RENAL TRANSPLANT
     Route: 048
  9. TACROLIMUS. [Suspect]
     Active Substance: TACROLIMUS
     Indication: RENAL TRANSPLANT
     Dosage: 27 MG, ONCE DAILY (5 CAPSULES OF 5 MG AND 2 CAPSULES OF 1 MG)
     Route: 048
     Dates: start: 20190820
  10. TACROLIMUS. [Suspect]
     Active Substance: TACROLIMUS
     Dosage: 6 MG, ONCE DAILY (1 CAPSULE OF 5MG AND 1 MG)
     Route: 048

REACTIONS (12)
  - Cellulitis [Recovered/Resolved]
  - Inflammation [Unknown]
  - Escherichia infection [Recovered/Resolved]
  - Abdominal pain upper [Recovered/Resolved]
  - Blood creatinine increased [Not Recovered/Not Resolved]
  - Diarrhoea [Recovered/Resolved]
  - Complications of transplant surgery [Recovered/Resolved]
  - BK virus infection [Unknown]
  - Secondary immunodeficiency [Recovering/Resolving]
  - Weight increased [Recovered/Resolved]
  - BK virus infection [Not Recovered/Not Resolved]
  - Swelling [Recovered/Resolved]

NARRATIVE: CASE EVENT DATE: 20190820
